FAERS Safety Report 24224992 (Version 1)
Quarter: 2024Q3

REPORT INFORMATION
  Report Type: Spontaneous
  Country: US (occurrence: US)
  Receive Date: 20240820
  Receipt Date: 20240820
  Transmission Date: 20241017
  Serious: No
  Sender: SANDOZ
  Company Number: US-SANDOZ-SDZ2024US073515

PATIENT
  Sex: Female

DRUGS (1)
  1. BRIMONIDINE TARTRATE AND TIMOLOL MALEATE [Suspect]
     Active Substance: BRIMONIDINE TARTRATE\TIMOLOL MALEATE
     Indication: Product used for unknown indication
     Dosage: DOSAGE STRENGTH 0.2, 0.5, BID
     Route: 061
     Dates: start: 202312

REACTIONS (4)
  - Skin irritation [Unknown]
  - Seborrhoeic keratosis [Unknown]
  - Rash [Unknown]
  - Vision blurred [Unknown]
